FAERS Safety Report 6132352-9 (Version None)
Quarter: 2009Q1

REPORT INFORMATION
  Report Type: 
  Country: None (occurrence: None)
  Receive Date: 20090324
  Receipt Date: 20090318
  Transmission Date: 20090719
  Serious: Yes (Life-Threatening, Hospitalization)
  Sender: FDA-Public Use
  Company Number: 2009-190161-NL

PATIENT
  Age: 44 Year
  Sex: Female

DRUGS (14)
  1. DEXAMETHASONE [Suspect]
     Dosage: DF
  2. ROCURONIUM BROMIDE [Suspect]
     Indication: PREOPERATIVE CARE
  3. CITALOPRAM HYDROBROMIDE [Suspect]
     Indication: DEPRESSION
     Dosage: 20 MG QD ORAL
     Route: 048
  4. METHYLENE BLUE [Suspect]
     Indication: PARATHYROIDECTOMY
     Dosage: INTRAVENOUS DRIP
     Route: 041
  5. MORPHINE [Suspect]
     Indication: ANALGESIA
     Dosage: DF
  6. PROPOFOL [Suspect]
     Indication: SEDATION
  7. REMIFENTANIL [Suspect]
  8. ACETYLSALICYLIC ACID [Concomitant]
  9. ATENOLOL [Concomitant]
  10. BENDROFLUMETHIAZIDE [Concomitant]
  11. FELODIPINE [Concomitant]
  12. ISOSORBIDE MONONITRATE [Concomitant]
  13. SIMVASTATIN [Concomitant]
  14. ALFENTANIL [Concomitant]

REACTIONS (19)
  - AGITATION [None]
  - AKATHISIA [None]
  - BLOOD CALCIUM INCREASED [None]
  - BLOOD PHOSPHORUS INCREASED [None]
  - DRUG INTERACTION [None]
  - DRUG TOXICITY [None]
  - EXTENSOR PLANTAR RESPONSE [None]
  - GLASGOW COMA SCALE ABNORMAL [None]
  - HYPERPARATHYROIDISM [None]
  - HYPERREFLEXIA [None]
  - INFLAMMATION [None]
  - MYDRIASIS [None]
  - MYOCLONUS [None]
  - PUPILLARY REFLEX IMPAIRED [None]
  - RESTLESSNESS [None]
  - SEROTONIN SYNDROME [None]
  - SPEECH DISORDER [None]
  - STARING [None]
  - WHITE BLOOD CELL COUNT INCREASED [None]
